FAERS Safety Report 7302539-8 (Version None)
Quarter: 2011Q1

REPORT INFORMATION
  Report Type: 
  Country: None (occurrence: None)
  Receive Date: 20110218
  Receipt Date: 20110215
  Transmission Date: 20110831
  Serious: No
  Sender: FDA-Public Use
  Company Number: US-PFIZER INC-2010171455

PATIENT
  Sex: Female

DRUGS (3)
  1. LISINOPRIL [Suspect]
     Indication: HYPERTENSION
     Dosage: 40 MG, UNK
  2. DILTIAZEM HCL [Suspect]
     Indication: HYPERTENSION
     Dosage: 180 MG, UNK
  3. TOVIAZ [Suspect]
     Dosage: UNK

REACTIONS (2)
  - DRY MOUTH [None]
  - DRUG INTERACTION [None]
